FAERS Safety Report 15349318 (Version 1)
Quarter: 2018Q3

REPORT INFORMATION
  Report Type: Spontaneous
  Country: IT (occurrence: IT)
  Receive Date: 20180904
  Receipt Date: 20180904
  Transmission Date: 20181010
  Serious: Yes (Hospitalization)
  Sender: FDA-Public Use
  Company Number: IT-MYLANLABS-2018M1065043

PATIENT
  Age: 48 Year
  Sex: Female

DRUGS (2)
  1. LEVETIRACETAM. [Suspect]
     Active Substance: LEVETIRACETAM
     Dosage: ORAL ROUTE FROM 2ND DAY OF TREATMENT
     Route: 048
  2. LEVETIRACETAM. [Suspect]
     Active Substance: LEVETIRACETAM
     Indication: EPILEPSY
     Dosage: INITIAL DOSE NOT STATED; DOSE TITRATED UP TO 1000 MG WITHIN 2 DAYS
     Route: 042

REACTIONS (1)
  - Rhabdomyolysis [Recovered/Resolved]
